FAERS Safety Report 6527768-2 (Version None)
Quarter: 2010Q1

REPORT INFORMATION
  Report Type: 
  Country: None (occurrence: None)
  Receive Date: 20100105
  Receipt Date: 20100105
  Transmission Date: 20100710
  Serious: Yes (Other)
  Sender: FDA-Public Use
  Company Number: None

PATIENT
  Age: 53 Year
  Sex: Female
  Weight: 51.7101 kg

DRUGS (2)
  1. ADVAIR DISKUS 100/50 [Suspect]
     Indication: ASTHMA
     Dosage: 100/50 1 PUFF A.M. 1 P.M.  USED SINCE ADVAIR WAS ON MARKET
  2. ADVAIR DISKUS 100/50 [Suspect]

REACTIONS (3)
  - FUNGAL OESOPHAGITIS [None]
  - IRRITABLE BOWEL SYNDROME [None]
  - THROAT IRRITATION [None]
